FAERS Safety Report 8012360-3 (Version None)
Quarter: 2011Q4

REPORT INFORMATION
  Report Type: 
  Country: None (occurrence: None)
  Receive Date: 20111228
  Receipt Date: 20111222
  Transmission Date: 20120403
  Serious: Yes (Hospitalization)
  Sender: FDA-Public Use
  Company Number: PL-AMGEN-POLSP2011068352

PATIENT
  Age: 32 Year
  Sex: Male
  Weight: 82 kg

DRUGS (1)
  1. CINACALCET HYDROCHLORIDE [Suspect]
     Indication: HYPERPARATHYROIDISM SECONDARY
     Dosage: 30 MG, QWK
     Route: 048
     Dates: start: 20110926, end: 20111215

REACTIONS (2)
  - CARDIAC FAILURE [None]
  - RESPIRATORY TRACT INFECTION [None]
